FAERS Safety Report 25348756 (Version 2)
Quarter: 2025Q2

REPORT INFORMATION
  Report Type: Spontaneous
  Country: PT (occurrence: PT)
  Receive Date: 20250522
  Receipt Date: 20250609
  Transmission Date: 20250717
  Serious: Yes (Other)
  Sender: GUERBET
  Company Number: None

PATIENT
  Age: 30 Year
  Sex: Female
  Weight: 56 kg

DRUGS (1)
  1. OPTIRAY 350 [Suspect]
     Active Substance: IOVERSOL
     Indication: Computerised tomogram kidney
     Route: 042
     Dates: start: 20250429, end: 20250429

REACTIONS (2)
  - Papule [Recovered/Resolved]
  - Dyspepsia [Recovered/Resolved]

NARRATIVE: CASE EVENT DATE: 20250429
